FAERS Safety Report 20029387 (Version 1)
Quarter: 2021Q4

REPORT INFORMATION
  Report Type: Spontaneous
  Country: US (occurrence: US)
  Receive Date: 20211103
  Receipt Date: 20211103
  Transmission Date: 20220303
  Serious: No
  Sender: FDA-Public Use
  Company Number: US-NOVARTISTESTPH-NVSC2021US251350

PATIENT
  Age: 75 Year
  Sex: Female

DRUGS (1)
  1. GLEEVEC [Suspect]
     Active Substance: IMATINIB MESYLATE
     Indication: Product used for unknown indication
     Dosage: UNK
     Route: 065

REACTIONS (8)
  - Face oedema [Unknown]
  - Eye irritation [Unknown]
  - Asthenia [Unknown]
  - Taste disorder [Unknown]
  - Cough [Unknown]
  - Gastritis [Unknown]
  - Chapped lips [Unknown]
  - Wheezing [Unknown]
